FAERS Safety Report 8431704-1 (Version None)
Quarter: 2012Q2

REPORT INFORMATION
  Report Type: 
  Country: None (occurrence: None)
  Receive Date: 20120613
  Receipt Date: 20120604
  Transmission Date: 20120825
  Serious: Yes (Hospitalization)
  Sender: FDA-Public Use
  Company Number: US-VERTEX PHARMACEUTICALS INC.-AE-2012-008150

PATIENT
  Sex: Male

DRUGS (4)
  1. PEGASYS [Concomitant]
     Indication: HEPATITIS C
     Route: 058
     Dates: start: 20120413, end: 20120601
  2. INCIVEK [Suspect]
     Indication: HEPATITIS C
     Route: 048
     Dates: start: 20120413, end: 20120601
  3. RIBAVIRIN [Concomitant]
     Indication: HEPATITIS C
     Route: 048
     Dates: start: 20120413, end: 20120601
  4. RIBAVIRIN [Concomitant]
     Route: 048

REACTIONS (7)
  - PARAESTHESIA [None]
  - HEADACHE [None]
  - PRURITUS [None]
  - DECREASED APPETITE [None]
  - INFLUENZA LIKE ILLNESS [None]
  - VISUAL ACUITY REDUCED [None]
  - NAUSEA [None]
